FAERS Safety Report 15984498 (Version 1)
Quarter: 2019Q1

REPORT INFORMATION
  Report Type: Spontaneous
  Country: US (occurrence: US)
  Receive Date: 20190219
  Receipt Date: 20190219
  Transmission Date: 20190418
  Serious: Yes (Other)
  Sender: FDA-Public Use
  Company Number: None

PATIENT
  Age: 5 Year
  Sex: Male
  Weight: 19.35 kg

DRUGS (1)
  1. OSELTAMIVIR [Suspect]
     Active Substance: OSELTAMIVIR
     Indication: INFLUENZA
     Dosage: ?          QUANTITY:7 LIQUID;?
     Route: 048

REACTIONS (5)
  - Amnesia [None]
  - Adverse drug reaction [None]
  - Delirium [None]
  - Unresponsive to stimuli [None]
  - Abnormal behaviour [None]

NARRATIVE: CASE EVENT DATE: 20190213
